FAERS Safety Report 6443244-X (Version None)
Quarter: 2009Q4

REPORT INFORMATION
  Report Type: 
  Country: None (occurrence: None)
  Receive Date: 20091117
  Receipt Date: 20091102
  Transmission Date: 20100525
  Serious: Yes (Other)
  Sender: FDA-Public Use
  Company Number: RU-GENENTECH-293786

PATIENT
  Age: 56 Year
  Sex: Male

DRUGS (4)
  1. MABTHERA [Suspect]
     Indication: DRUG USE FOR UNKNOWN INDICATION
     Route: 042
  2. CYCLOPHOSPHAN [Concomitant]
     Indication: DRUG USE FOR UNKNOWN INDICATION
  3. METHYLPREDNISOLONE 4MG TAB [Concomitant]
     Indication: DRUG USE FOR UNKNOWN INDICATION
  4. SULFASALAZINE [Concomitant]
     Indication: DRUG USE FOR UNKNOWN INDICATION

REACTIONS (1)
  - OSTEOCHONDROSIS [None]
